FAERS Safety Report 13341226 (Version 1)
Quarter: 2017Q1

REPORT INFORMATION
  Report Type: Spontaneous
  Country: US (occurrence: US)
  Receive Date: 20170316
  Receipt Date: 20170316
  Transmission Date: 20170428
  Serious: No
  Sender: FDA-Public Use
  Company Number: US-ROCHE-1753456

PATIENT
  Sex: Male

DRUGS (5)
  1. SAW PALMETTO [Concomitant]
     Active Substance: SAW PALMETTO
  2. GARLIC. [Concomitant]
     Active Substance: GARLIC
  3. ALEVE [Concomitant]
     Active Substance: NAPROXEN SODIUM
  4. ERIVEDGE [Suspect]
     Active Substance: VISMODEGIB
     Indication: BASAL CELL CARCINOMA
     Route: 048
     Dates: start: 20160420
  5. ASPIRIN. [Concomitant]
     Active Substance: ASPIRIN

REACTIONS (2)
  - Asthenia [Unknown]
  - Fatigue [Unknown]
